FAERS Safety Report 10680471 (Version 1)
Quarter: 2014Q4

REPORT INFORMATION
  Report Type: Spontaneous
  Country: US (occurrence: US)
  Receive Date: 20141229
  Receipt Date: 20141229
  Transmission Date: 20150529
  Serious: No
  Sender: FDA-Public Use
  Company Number: US-SA-2014SA014757

PATIENT
  Sex: Female

DRUGS (7)
  1. LIPITOR [Concomitant]
     Active Substance: ATORVASTATIN CALCIUM
  2. ATENOLOL. [Concomitant]
     Active Substance: ATENOLOL
  3. GLYBURIDE. [Concomitant]
     Active Substance: GLYBURIDE
  4. AMLODIPINE/VALSARTAN [Concomitant]
  5. PLAVIX [Suspect]
     Active Substance: CLOPIDOGREL BISULFATE
     Route: 065
  6. CLONIDINE. [Concomitant]
     Active Substance: CLONIDINE
  7. ASPIRIN. [Concomitant]
     Active Substance: ASPIRIN

REACTIONS (2)
  - Contusion [Unknown]
  - Blood potassium abnormal [Unknown]
